FAERS Safety Report 19185839 (Version 1)
Quarter: 2021Q2

REPORT INFORMATION
  Report Type: Report from Study
  Country: US (occurrence: US)
  Receive Date: 20210427
  Receipt Date: 20210427
  Transmission Date: 20210717
  Serious: Yes (Hospitalization)
  Sender: FDA-Public Use
  Company Number: US-GW PHARMA-202104USGW01913

PATIENT

DRUGS (4)
  1. EPIDIOLEX [Suspect]
     Active Substance: CANNABIDIOL
     Indication: LENNOX-GASTAUT SYNDROME
     Dosage: 4.82MG/KG/DAY, 300 MILLIGRAM, QD
     Route: 048
     Dates: start: 2019
  2. CENOBAMATE. [Concomitant]
     Active Substance: CENOBAMATE
     Indication: LENNOX-GASTAUT SYNDROME
     Dosage: UNK
     Route: 065
  3. FELBAMATE. [Concomitant]
     Active Substance: FELBAMATE
     Indication: LENNOX-GASTAUT SYNDROME
     Dosage: UNK
     Route: 065
  4. LAMOTRIGINE. [Concomitant]
     Active Substance: LAMOTRIGINE
     Indication: LENNOX-GASTAUT SYNDROME
     Dosage: UNK
     Route: 065

REACTIONS (2)
  - Hospitalisation [Unknown]
  - Condition aggravated [Unknown]
